FAERS Safety Report 20195735 (Version 2)
Quarter: 2022Q2

REPORT INFORMATION
  Report Type: Spontaneous
  Country: GB (occurrence: GB)
  Receive Date: 20211216
  Receipt Date: 20220415
  Transmission Date: 20220720
  Serious: Yes (Death, Other)
  Sender: FDA-Public Use
  Company Number: GB-MYLANLABS-2021M1093597

PATIENT
  Age: 40 Year
  Sex: Male

DRUGS (1)
  1. CLOZARIL [Suspect]
     Active Substance: CLOZAPINE
     Indication: Schizophrenia
     Dosage: 800 MILLIGRAM, ON
     Route: 048
     Dates: start: 20150903

REACTIONS (3)
  - Cardiac arrest [Fatal]
  - Pulmonary embolism [Fatal]
  - Sepsis [Unknown]

NARRATIVE: CASE EVENT DATE: 20211207
